FAERS Safety Report 24313532 (Version 2)
Quarter: 2024Q4

REPORT INFORMATION
  Report Type: Spontaneous
  Country: GB (occurrence: GB)
  Receive Date: 20240912
  Receipt Date: 20241114
  Transmission Date: 20250115
  Serious: Yes (Hospitalization)
  Sender: PURDUE
  Company Number: GB-MLMSERVICE-20240902-PI176757-00073-1

PATIENT
  Age: 56 Year
  Sex: Female

DRUGS (13)
  1. BUPRENORPHINE [Suspect]
     Active Substance: BUPRENORPHINE
     Indication: Drug use disorder
     Dosage: ON DAY 1, 400 ?G ONCE DAILY
     Route: 060
  2. BUPRENORPHINE [Suspect]
     Active Substance: BUPRENORPHINE
     Dosage: ON DAY 6, 6 MG ONCE DAILY
     Route: 060
  3. BUPRENORPHINE [Suspect]
     Active Substance: BUPRENORPHINE
     Dosage: 1.6 MILLIGRAM, DAILY, 1.6 MG ONCE DAILY ON DAY 3
     Route: 060
  4. BUPRENORPHINE [Suspect]
     Active Substance: BUPRENORPHINE
     Dosage: 2 MILLIGRAM, DAILY, 2 MG ONCE DAILY ON DAY 4
     Route: 060
  5. BUPRENORPHINE [Suspect]
     Active Substance: BUPRENORPHINE
     Dosage: INCREASED TO 800 ?G ONCE DAILY ON DAY 2
     Route: 060
  6. BUPRENORPHINE [Suspect]
     Active Substance: BUPRENORPHINE
     Dosage: TITRATED UP IN INCREMENTS OF 2 MG ONCE DAILY
     Route: 060
  7. BUPRENORPHINE [Suspect]
     Active Substance: BUPRENORPHINE
     Indication: Drug use disorder
     Dosage: ON DAY 1, 400 ?G ONCE DAILY
     Route: 060
  8. BUPRENORPHINE [Suspect]
     Active Substance: BUPRENORPHINE
     Dosage: ON DAY 6, 6 MG ONCE DAILY
     Route: 060
  9. BUPRENORPHINE [Suspect]
     Active Substance: BUPRENORPHINE
     Dosage: 1.6 MILLIGRAM, DAILY, 1.6 MG ONCE DAILY ON DAY 3
     Route: 060
  10. BUPRENORPHINE [Suspect]
     Active Substance: BUPRENORPHINE
     Dosage: 2 MILLIGRAM, DAILY, 2 MG ONCE DAILY ON DAY 4
     Route: 060
  11. BUPRENORPHINE [Suspect]
     Active Substance: BUPRENORPHINE
     Dosage: INCREASED TO 800 ?G ONCE DAILY ON DAY 2
     Route: 060
  12. BUPRENORPHINE [Suspect]
     Active Substance: BUPRENORPHINE
     Dosage: TITRATED UP IN INCREMENTS OF 2 MG ONCE DAILY
     Route: 060
  13. LORAZEPAM [Concomitant]
     Active Substance: LORAZEPAM
     Indication: Product used for unknown indication
     Dosage: WHEN SHE REQUIRED DURING HER ADMISSION, INCLUDING PRIOR TO BUPRENORPHINE INITIATION
     Route: 065

REACTIONS (10)
  - Delusion [Recovering/Resolving]
  - Agitation [Recovering/Resolving]
  - Flight of ideas [Recovering/Resolving]
  - Insomnia [Recovering/Resolving]
  - Mental impairment [Recovering/Resolving]
  - Aggression [Recovering/Resolving]
  - Tangentiality [Recovering/Resolving]
  - Decreased appetite [Recovering/Resolving]
  - Feeling abnormal [Recovering/Resolving]
  - Pressure of speech [Recovering/Resolving]
